FAERS Safety Report 5706341-X (Version None)
Quarter: 2008Q2

REPORT INFORMATION
  Report Type: 
  Country: None (occurrence: None)
  Receive Date: 20080328
  Receipt Date: 20070510
  Transmission Date: 20081010
  Serious: Yes (Other)
  Sender: FDA-Public Use
  Company Number: IMP_02913_2007

PATIENT
  Age: 56 Year
  Sex: Female

DRUGS (1)
  1. CLARITIN-D [Suspect]
     Indication: RHINORRHOEA
     Dosage: (DF ORAL)
     Route: 048
     Dates: start: 20070509

REACTIONS (2)
  - INSOMNIA [None]
  - PHARMACEUTICAL PRODUCT COMPLAINT [None]
